FAERS Safety Report 10521498 (Version 1)
Quarter: 2014Q4

REPORT INFORMATION
  Report Type: Other
  Country: IT (occurrence: IT)
  Receive Date: 20141016
  Receipt Date: 20141016
  Transmission Date: 20150528
  Serious: Yes (Other)
  Sender: FDA-Public Use
  Company Number: IT-SUN PHARMACEUTICAL INDUSTRIES LTD-2014SUN02119

PATIENT
  Age: 67 Year
  Sex: Female

DRUGS (6)
  1. DILATREND [Concomitant]
     Active Substance: CARVEDILOL
     Dosage: 50 MG, UNK
     Route: 048
  2. SIMVASTATIN. [Concomitant]
     Active Substance: SIMVASTATIN
     Dosage: 20 MG, UNK
     Route: 048
  3. CARDIOASPIRIN [Concomitant]
     Active Substance: ASPIRIN
     Dosage: 100 MG, AT A DOSE OF 1 DF
     Route: 048
  4. LETROZOLE 2.5 MG FILMCOATED TABLETS [Suspect]
     Active Substance: LETROZOLE
     Indication: BREAST CANCER
     Dosage: 2.5 MG, QD
     Route: 048
     Dates: start: 20140115
  5. LANSOX CAPSULE [Concomitant]
     Dosage: 30 MG, UNK
     Route: 048
  6. DIBASE [Concomitant]
     Active Substance: CHOLECALCIFEROL
     Dosage: 30 GTT, UNK
     Route: 048

REACTIONS (6)
  - Gingival pain [Unknown]
  - Glossodynia [Unknown]
  - Macroglossia [Unknown]
  - Product substitution issue [Unknown]
  - Dyspepsia [Unknown]
  - Reaction to drug excipients [Unknown]

NARRATIVE: CASE EVENT DATE: 20140118
